FAERS Safety Report 23027301 (Version 3)
Quarter: 2023Q4

REPORT INFORMATION
  Report Type: Report from Study
  Country: PR (occurrence: PR)
  Receive Date: 20231004
  Receipt Date: 20231023
  Transmission Date: 20240110
  Serious: Yes (Hospitalization)
  Sender: FDA-Public Use
  Company Number: PR-ABBVIE-5431430

PATIENT
  Sex: Female
  Weight: 78 kg

DRUGS (5)
  1. VENETOCLAX [Suspect]
     Active Substance: VENETOCLAX
     Indication: Product used for unknown indication
     Dosage: LAST ADMIN DATE: 2023
     Route: 048
     Dates: start: 20230718
  2. VANCOMYCIN [Suspect]
     Active Substance: VANCOMYCIN
     Indication: Bacterial sepsis
     Dosage: START DATE TEXT: UNKNOWN,?STOP DATE TEXT: UNKNOWN
     Route: 065
     Dates: start: 2023
  3. ATORVASTATIN [Concomitant]
     Active Substance: ATORVASTATIN
     Indication: Product used for unknown indication
     Dosage: FORM STRENGTH: 10 MILLIGRAM
     Route: 048
  4. SYNTHROID [Concomitant]
     Active Substance: LEVOTHYROXINE SODIUM
     Indication: Product used for unknown indication
     Route: 048
  5. LOSARTAN [Concomitant]
     Active Substance: LOSARTAN
     Indication: Product used for unknown indication
     Dosage: FORM STRENGTH: 50 MILLIGRAM
     Route: 048

REACTIONS (2)
  - Renal failure [Not Recovered/Not Resolved]
  - Bacterial sepsis [Not Recovered/Not Resolved]

NARRATIVE: CASE EVENT DATE: 20230801
